FAERS Safety Report 9356830 (Version 1)
Quarter: 2013Q2

REPORT INFORMATION
  Report Type: Report from Study
  Country: JP (occurrence: JP)
  Receive Date: 20130620
  Receipt Date: 20130620
  Transmission Date: 20140414
  Serious: Yes (Other)
  Sender: FDA-Public Use
  Company Number: JP-009507513-1304JPN011220

PATIENT
  Age: 83 Year
  Sex: Female

DRUGS (1)
  1. EZETIMIBE [Suspect]
     Dosage: 10 MG, QD
     Route: 048
     Dates: start: 20071025

REACTIONS (1)
  - Neurogenic bladder [Recovering/Resolving]
